FAERS Safety Report 4324351-4 (Version None)
Quarter: 2004Q1

REPORT INFORMATION
  Report Type: 
  Country: None (occurrence: None)
  Receive Date: 20040326
  Receipt Date: 20040202
  Transmission Date: 20041129
  Serious: No
  Sender: FDA-Public Use
  Company Number: US-GLAXOSMITHKLINE-A0496084A

PATIENT
  Age: 55 Year
  Sex: Female

DRUGS (5)
  1. ADVAIR DISKUS 100/50 [Suspect]
     Dosage: 1PUFF TWICE PER DAY
     Route: 055
     Dates: start: 20040129
  2. ATENOLOL [Concomitant]
  3. FEMHRT [Concomitant]
  4. ASPIRIN [Concomitant]
  5. CHLOR-TRIMETON [Concomitant]

REACTIONS (2)
  - BONE PAIN [None]
  - HYPERTENSION [None]
